FAERS Safety Report 4988327-6 (Version None)
Quarter: 2006Q2

REPORT INFORMATION
  Report Type: 
  Country: None (occurrence: None)
  Receive Date: 20060425
  Receipt Date: 20060411
  Transmission Date: 20061013
  Serious: Yes (Death, Hospitalization)
  Sender: FDA-Public Use
  Company Number: T06-JPN-00095-01

PATIENT
  Age: 83 Year
  Sex: Male
  Weight: 55 kg

DRUGS (3)
  1. MEMANTINE HCL [Suspect]
     Indication: DEMENTIA ALZHEIMER'S TYPE
     Dosage: UNK
     Route: 065
     Dates: start: 20051218, end: 20060113
  2. FERROUS CITRATE [Concomitant]
  3. REBAMIPIDE [Concomitant]

REACTIONS (34)
  - ASCITES [None]
  - BLOOD ALBUMIN DECREASED [None]
  - BLOOD CHLORIDE INCREASED [None]
  - BLOOD CHOLESTEROL DECREASED [None]
  - BLOOD CREATININE INCREASED [None]
  - BLOOD GLUCOSE INCREASED [None]
  - BLOOD PRESSURE INCREASED [None]
  - BLOOD SODIUM INCREASED [None]
  - BODY TEMPERATURE DECREASED [None]
  - C-REACTIVE PROTEIN INCREASED [None]
  - COLD SWEAT [None]
  - COMPUTERISED TOMOGRAM ABDOMEN ABNORMAL [None]
  - CREATINE PHOSPHOKINASE DECREASED [None]
  - DISSEMINATED INTRAVASCULAR COAGULATION [None]
  - FAT TISSUE INCREASED [None]
  - HAEMATOCRIT DECREASED [None]
  - HAEMOGLOBIN DECREASED [None]
  - HEART RATE INCREASED [None]
  - INFLAMMATION [None]
  - LABORATORY TEST ABNORMAL [None]
  - MEAN CELL HAEMOGLOBIN CONCENTRATION DECREASED [None]
  - MEAN CELL HAEMOGLOBIN INCREASED [None]
  - MEAN CELL VOLUME INCREASED [None]
  - OXYGEN SATURATION DECREASED [None]
  - PANCREATIC CYST [None]
  - PANCREATIC NECROSIS [None]
  - PANCREATITIS ACUTE [None]
  - PERITONITIS [None]
  - PLATELET COUNT DECREASED [None]
  - PLEURAL EFFUSION [None]
  - PROTEIN TOTAL DECREASED [None]
  - RED BLOOD CELL COUNT DECREASED [None]
  - RESPIRATORY DISORDER [None]
  - THROMBIN-ANTITHROMBIN III COMPLEX DECREASED [None]
